FAERS Safety Report 15094635 (Version 2)
Quarter: 2018Q3

REPORT INFORMATION
  Report Type: Spontaneous
  Country: DE (occurrence: DE)
  Receive Date: 20180701
  Receipt Date: 20180726
  Transmission Date: 20181010
  Serious: Yes (Life-Threatening, Other)
  Sender: FDA-Public Use
  Company Number: DE-B.I. PHARMACEUTICALS,INC./RIDGEFIELD-2018-BI-033402

PATIENT
  Age: 52 Year
  Sex: Male

DRUGS (1)
  1. OFEV [Suspect]
     Active Substance: NINTEDANIB
     Indication: IDIOPATHIC PULMONARY FIBROSIS
     Route: 065
     Dates: start: 201509, end: 20170311

REACTIONS (4)
  - Renal failure [Unknown]
  - Wound dehiscence [Unknown]
  - Lung transplant [Unknown]
  - Pneumothorax [Unknown]

NARRATIVE: CASE EVENT DATE: 20170311
